FAERS Safety Report 8573554 (Version 4)
Quarter: 2013Q2

REPORT INFORMATION
  Report Type: Report from Study
  Country: US (occurrence: US)
  Receive Date: 20120522
  Receipt Date: 20130402
  Transmission Date: 20140414
  Serious: Yes (Other)
  Sender: FDA-Public Use
  Company Number: US-ROCHE-1069968

PATIENT
  Age: 62 Year
  Sex: Female
  Weight: 67.19 kg

DRUGS (4)
  1. CAPECITABINE [Suspect]
     Indication: BREAST CANCER METASTATIC
     Route: 048
     Dates: start: 20120513
  2. CAPECITABINE [Suspect]
     Dosage: TWICE DAILY X 14 DAYS ON, THEN X 7 DAYS OFF
     Route: 048
     Dates: start: 20120512, end: 201210
  3. CAPECITABINE [Suspect]
     Dosage: TWICE DAILY X 6 DAYS ON, 2 DAYS OFF X 2 WEEKS
     Route: 048
     Dates: start: 201210
  4. ZOMETA [Concomitant]
     Route: 042
     Dates: start: 20120416

REACTIONS (7)
  - Tumour associated fever [Not Recovered/Not Resolved]
  - Arthropathy [Not Recovered/Not Resolved]
  - Arthralgia [Not Recovered/Not Resolved]
  - Dry skin [Not Recovered/Not Resolved]
  - Skin fissures [Not Recovered/Not Resolved]
  - Skin exfoliation [Not Recovered/Not Resolved]
  - Feeling hot [Not Recovered/Not Resolved]
